FAERS Safety Report 21376736 (Version 1)
Quarter: 2022Q3

REPORT INFORMATION
  Report Type: Spontaneous
  Country: US (occurrence: None)
  Receive Date: 20220924
  Receipt Date: 20220924
  Transmission Date: 20221027
  Serious: Yes (Disabling)
  Sender: FDA-Public Use
  Company Number: None

PATIENT
  Age: 34 Year
  Sex: Female
  Weight: 81 kg

DRUGS (3)
  1. MONTELUKAST [Suspect]
     Active Substance: MONTELUKAST SODIUM
     Indication: Promotion of wound healing
     Dosage: 90 TABLETS ORAL
     Route: 048
     Dates: start: 20220824, end: 20220917
  2. VYVANSE [Concomitant]
  3. VITAMINS [Concomitant]
     Active Substance: VITAMINS

REACTIONS (4)
  - Anxiety [None]
  - Depression [None]
  - Anger [None]
  - Irritability [None]

NARRATIVE: CASE EVENT DATE: 20220910
